FAERS Safety Report 9686117 (Version 1)
Quarter: 2013Q4

REPORT INFORMATION
  Report Type: Report from Study
  Country: AR (occurrence: AR)
  Receive Date: 20131113
  Receipt Date: 20131113
  Transmission Date: 20140711
  Serious: Yes (Hospitalization, Other)
  Sender: FDA-Public Use
  Company Number: PHHY2013AR129370

PATIENT
  Sex: Female

DRUGS (3)
  1. DIOVAN [Suspect]
     Indication: HYPERTENSION
     Dosage: 2 DF (80MG), A DAY
     Route: 048
  2. TRANQUINAL [Concomitant]
     Indication: NERVOUSNESS
     Dosage: UNK UKN, UNK
     Route: 048
  3. CALCIUM [Concomitant]
     Dosage: 1 DF, A DAY
     Route: 048

REACTIONS (11)
  - Intervertebral disc injury [Recovering/Resolving]
  - Pain [Recovering/Resolving]
  - Accident at home [Recovering/Resolving]
  - Fall [Recovering/Resolving]
  - Blood pressure increased [Recovered/Resolved]
  - Eye injury [Recovering/Resolving]
  - Nervousness [Recovering/Resolving]
  - Fear [Not Recovered/Not Resolved]
  - Tooth injury [Unknown]
  - Sensory disturbance [Recovered/Resolved]
  - Procedural pain [Unknown]
